FAERS Safety Report 7959442-X (Version None)
Quarter: 2011Q4

REPORT INFORMATION
  Report Type: 
  Country: None (occurrence: None)
  Receive Date: 20111206
  Receipt Date: 20111203
  Transmission Date: 20120403
  Serious: No
  Sender: FDA-Public Use
  Company Number: US-PFIZER INC-2011295115

PATIENT
  Sex: Female

DRUGS (3)
  1. CORTISONE ACETATE [Suspect]
     Indication: HYPERSENSITIVITY
     Dosage: UNK
     Dates: start: 20110101, end: 20110101
  2. AZITHROMYCIN [Suspect]
     Indication: BRONCHITIS
     Dosage: 500MG
     Dates: start: 20111001
  3. AZITHROMYCIN [Suspect]
     Indication: SINUSITIS
     Dosage: 250 MG, DAILY FOR NEXT FOUR DAYS
     Dates: start: 20111001, end: 20111001

REACTIONS (2)
  - HYPERSENSITIVITY [None]
  - DRUG INEFFECTIVE [None]
